FAERS Safety Report 8255917-7 (Version None)
Quarter: 2012Q1

REPORT INFORMATION
  Report Type: 
  Country: None (occurrence: None)
  Receive Date: 20120322
  Receipt Date: 20111208
  Transmission Date: 20120608
  Serious: Yes (Hospitalization)
  Sender: FDA-Public Use
  Company Number: UTC-013233

PATIENT
  Age: 44 Year
  Sex: Female
  Weight: 96.36 kg

DRUGS (4)
  1. DIURETICS (DIURETICS) [Concomitant]
  2. REVATIO [Concomitant]
  3. TYVASO [Suspect]
     Indication: PULMONARY ARTERIAL HYPERTENSION
     Dosage: (24 MCG), INHALATION
     Route: 055
     Dates: start: 20110829
  4. LETAIRIS [Concomitant]

REACTIONS (2)
  - CARDIOSPASM [None]
  - MUSCLE SPASMS [None]
